FAERS Safety Report 9167590 (Version 1)
Quarter: 2013Q1

REPORT INFORMATION
  Report Type: Spontaneous
  Country: SE (occurrence: None)
  Receive Date: 20130307
  Receipt Date: 20130307
  Transmission Date: 20140127
  Serious: No
  Sender: FDA-Public Use
  Company Number: 2013-03589

PATIENT
  Age: 76 Year
  Sex: Female

DRUGS (2)
  1. PACLITAXEL [Suspect]
     Indication: BREAST CANCER
     Dosage: UNKNOWN, UNKNOWN
     Dates: start: 20120925, end: 20120925
  2. HERCEPTIN (TRASTUZUMAB) [Suspect]
     Indication: BREAST CANCER
     Dosage: UNK, UNKNOWN)
     Dates: start: 20120925, end: 20120925

REACTIONS (3)
  - Cardiomyopathy [None]
  - Chest discomfort [None]
  - Dyspnoea [None]
